FAERS Safety Report 9207781 (Version 2)
Quarter: 2013Q2

REPORT INFORMATION
  Report Type: Spontaneous
  Country: US (occurrence: US)
  Receive Date: 20130403
  Receipt Date: 20130522
  Transmission Date: 20140414
  Serious: Yes (Other)
  Sender: FDA-Public Use
  Company Number: US-GLAXOSMITHKLINE-A1017509A

PATIENT
  Age: 66 Year
  Sex: Male

DRUGS (2)
  1. AVODART [Suspect]
     Indication: BENIGN PROSTATIC HYPERPLASIA
     Dosage: .5MG IN THE MORNING
     Route: 048
     Dates: start: 2010
  2. CIALIS [Concomitant]

REACTIONS (4)
  - Urinary retention [Recovered/Resolved]
  - Urinary hesitation [Recovered/Resolved]
  - Drug ineffective [Recovered/Resolved]
  - Product quality issue [Unknown]
